FAERS Safety Report 6517063-X (Version None)
Quarter: 2009Q4

REPORT INFORMATION
  Report Type: 
  Country: None (occurrence: None)
  Receive Date: 20091223
  Receipt Date: 20091217
  Transmission Date: 20100525
  Serious: Yes (Death, Other)
  Sender: FDA-Public Use
  Company Number: JP-BRISTOL-MYERS SQUIBB COMPANY-14901656

PATIENT
  Age: 76 Year
  Sex: Female

DRUGS (1)
  1. TAXOL [Suspect]
     Indication: OVARIAN CANCER
     Dosage: 16NOV09
     Route: 041
     Dates: start: 20091109, end: 20091124

REACTIONS (2)
  - CEREBRAL INFARCTION [None]
  - PNEUMONIA [None]
